FAERS Safety Report 21187496 (Version 4)
Quarter: 2022Q3

REPORT INFORMATION
  Report Type: Report from Study
  Country: FR (occurrence: FR)
  Receive Date: 20220808
  Receipt Date: 20220922
  Transmission Date: 20221027
  Serious: Yes (Death, Hospitalization, Other)
  Sender: FDA-Public Use
  Company Number: FR-GILEAD-2022-0592699

PATIENT
  Sex: Female
  Weight: 65 kg

DRUGS (4)
  1. SACITUZUMAB GOVITECAN [Suspect]
     Active Substance: SACITUZUMAB GOVITECAN
     Indication: Triple negative breast cancer
     Dosage: 10 MG/KG (600 MG) CYCLE1 D1,D8
     Route: 042
     Dates: start: 20220211, end: 20220422
  2. SACITUZUMAB GOVITECAN [Suspect]
     Active Substance: SACITUZUMAB GOVITECAN
     Dosage: 10 MG/KG CYCLE2 D1,D8
     Route: 042
     Dates: start: 20220304, end: 20220311
  3. SACITUZUMAB GOVITECAN [Suspect]
     Active Substance: SACITUZUMAB GOVITECAN
     Dosage: 10 MG/KG CYCLE3 D1,D8
     Route: 042
     Dates: start: 20220325, end: 20220401
  4. SACITUZUMAB GOVITECAN [Suspect]
     Active Substance: SACITUZUMAB GOVITECAN
     Dosage: 10 MG/KG (600 MG) CYCLE4 D1,D8
     Route: 042
     Dates: start: 20220415, end: 20220422

REACTIONS (5)
  - Nausea [Not Recovered/Not Resolved]
  - Meningitis [Fatal]
  - General physical condition abnormal [Unknown]
  - Eating disorder [Unknown]
  - Asthenia [Not Recovered/Not Resolved]

NARRATIVE: CASE EVENT DATE: 20220303
